FAERS Safety Report 23674649 (Version 3)
Quarter: 2024Q3

REPORT INFORMATION
  Report Type: Spontaneous
  Country: CR (occurrence: CR)
  Receive Date: 20240326
  Receipt Date: 20240918
  Transmission Date: 20241016
  Serious: No
  Sender: PFIZER
  Company Number: CR-PFIZER INC-PV202400033532

PATIENT
  Age: 1 Year
  Sex: Female

DRUGS (1)
  1. GENOTROPIN [Suspect]
     Active Substance: SOMATROPIN
     Dosage: UNK

REACTIONS (2)
  - Device use error [Unknown]
  - Device physical property issue [Unknown]
